FAERS Safety Report 5008421-3 (Version None)
Quarter: 2006Q2

REPORT INFORMATION
  Report Type: 
  Country: None (occurrence: None)
  Receive Date: 20060523
  Receipt Date: 20031216
  Transmission Date: 20061013
  Serious: Yes (Life-Threatening, Hospitalization)
  Sender: FDA-Public Use
  Company Number: US-KINGPHARMUSA00001-K200301915

PATIENT
  Age: 54 Year
  Sex: Female

DRUGS (26)
  1. ALTACE [Suspect]
     Indication: HYPERTENSION
     Dosage: 10 MG, QD
     Route: 048
     Dates: end: 20031117
  2. ALTACE [Suspect]
     Dosage: 10 MG, QD
     Route: 048
     Dates: start: 20031124, end: 20031205
  3. ENOXAPARIN SODIUM [Suspect]
     Indication: THROMBOSIS PROPHYLAXIS
     Dosage: 40 MG, QD
     Route: 058
     Dates: start: 20031117, end: 20031124
  4. PLACEBO (OR ENOXAPARIN) [Suspect]
     Indication: THROMBOSIS PROPHYLAXIS
     Dosage: UNK, QD
     Route: 058
     Dates: start: 20031125, end: 20031212
  5. VALSARTAN [Suspect]
     Indication: HYPERTENSION
     Dosage: 160 MG, QD
     Route: 048
     Dates: end: 20031117
  6. VALSARTAN [Suspect]
     Dosage: 160 MG, QD
     Route: 048
     Dates: start: 20031124, end: 20031205
  7. FENOFIBRATE [Suspect]
     Indication: HYPERCHOLESTEROLAEMIA
     Dosage: 200 MG, QD
     Route: 048
     Dates: end: 20031117
  8. FENOFIBRATE [Suspect]
     Dosage: 200 MG, QD
     Route: 048
     Dates: start: 20031124, end: 20031205
  9. HUMULIN [Suspect]
     Indication: DIABETES MELLITUS NON-INSULIN-DEPENDENT
     Dosage: VARIABLE U
     Route: 058
     Dates: start: 20031101, end: 20031206
  10. FUROSEMIDE [Concomitant]
     Indication: CARDIAC FAILURE
     Dosage: 120 MG, UNK
     Route: 048
  11. PULMICORT [Concomitant]
     Indication: ASTHMA
     Dosage: 2 PUFFS, UNK
  12. ACETYLSALICYLIC ACID SRT [Concomitant]
     Indication: CARDIOVASCULAR DISORDER
     Dosage: 162 MG, UNK
     Route: 048
  13. BRICANYL [Concomitant]
     Indication: CHRONIC OBSTRUCTIVE PULMONARY DISEASE
  14. LOSEC [Concomitant]
     Indication: IRRITABLE BOWEL SYNDROME
     Dosage: 20 MG, UNK
     Route: 061
  15. EFFEXOR XR [Concomitant]
     Indication: ANXIETY DISORDER
     Dosage: 150 MG, UNK
     Route: 048
  16. OXAZEPAM [Concomitant]
     Indication: ANXIETY DISORDER
     Dosage: 15-30 MG, UNK
     Route: 048
  17. HYDROCHLOROTHIAZIDE [Concomitant]
     Indication: CARDIAC FAILURE
     Dosage: 12.5 MG, UNK
     Route: 048
  18. CLONIDINE [Concomitant]
     Indication: HYPERTENSION
     Dosage: .1 MG, UNK
     Route: 048
  19. AMITRIPTYLINE HCL [Concomitant]
     Indication: SEDATION
     Dosage: 75 MG, UNK
     Route: 048
  20. VERAPAMIL [Concomitant]
     Indication: HYPERTENSION
     Dosage: 480 MG, UNK
     Route: 048
  21. VENTOLIN [Concomitant]
     Indication: ASTHMA
     Dosage: 2 PUFFS
  22. FLOVENT [Concomitant]
     Indication: ASTHMA
     Dosage: 250 UG,
  23. SEREVENT [Concomitant]
     Indication: ASTHMA
     Dosage: 2 PUFFS
  24. ATARAX [Concomitant]
     Indication: ANXIETY DISORDER
     Dosage: 25 MG, UNK
     Route: 048
  25. OXEZE [Concomitant]
     Indication: CHRONIC OBSTRUCTIVE PULMONARY DISEASE
     Dosage: 2 PUFFS
  26. NIACIN [Concomitant]
     Indication: HYPERCHOLESTEROLAEMIA
     Dosage: 2000 MG, QD
     Route: 048

REACTIONS (17)
  - ANAPHYLACTIC REACTION [None]
  - BLOOD CREATINE PHOSPHOKINASE INCREASED [None]
  - BLOOD CREATININE INCREASED [None]
  - BRONCHOSPASM [None]
  - CARDIAC FAILURE CONGESTIVE [None]
  - CONFUSIONAL STATE [None]
  - DROOLING [None]
  - DYSPNOEA [None]
  - FATIGUE [None]
  - HYPERHIDROSIS [None]
  - HYPOGLYCAEMIA [None]
  - MYALGIA [None]
  - OXYGEN SATURATION DECREASED [None]
  - RENAL FAILURE ACUTE [None]
  - RHABDOMYOLYSIS [None]
  - SWOLLEN TONGUE [None]
  - VENOUS PRESSURE JUGULAR INCREASED [None]
